FAERS Safety Report 7813894-4 (Version None)
Quarter: 2011Q4

REPORT INFORMATION
  Report Type: 
  Country: None (occurrence: None)
  Receive Date: 20111014
  Receipt Date: 20111011
  Transmission Date: 20120403
  Serious: Yes (Other)
  Sender: FDA-Public Use
  Company Number: US-PFIZER INC-2011243067

PATIENT
  Sex: Female
  Weight: 43.1 kg

DRUGS (3)
  1. PREMARIN [Suspect]
     Indication: OESTROGEN REPLACEMENT THERAPY
  2. ASPIRIN [Concomitant]
     Dosage: 81 MG, UNK
  3. PREMARIN [Suspect]
     Indication: HYSTERECTOMY
     Dosage: 0.3 MG, 1X/DAY
     Route: 048

REACTIONS (1)
  - MITRAL VALVE PROLAPSE [None]
